FAERS Safety Report 14409493 (Version 2)
Quarter: 2018Q1

REPORT INFORMATION
  Report Type: Spontaneous
  Country: US (occurrence: US)
  Receive Date: 20180119
  Receipt Date: 20180213
  Transmission Date: 20180509
  Serious: Yes (Other)
  Sender: FDA-Public Use
  Company Number: US-ROCHE-2055398

PATIENT
  Age: 83 Year
  Sex: Female
  Weight: 58.11 kg

DRUGS (5)
  1. LIPITOR [Concomitant]
     Active Substance: ATORVASTATIN CALCIUM
     Route: 065
  2. RANITIDINE. [Concomitant]
     Active Substance: RANITIDINE
     Route: 065
  3. ESBRIET [Suspect]
     Active Substance: PIRFENIDONE
     Indication: IDIOPATHIC PULMONARY FIBROSIS
     Route: 048
     Dates: start: 20160803
  4. ESBRIET [Suspect]
     Active Substance: PIRFENIDONE
     Route: 048
     Dates: end: 20171229
  5. ESBRIET [Suspect]
     Active Substance: PIRFENIDONE
     Route: 048
     Dates: start: 20160718

REACTIONS (2)
  - Renal failure [Recovered/Resolved]
  - Renal impairment [Unknown]

NARRATIVE: CASE EVENT DATE: 20171204
